FAERS Safety Report 9492919 (Version 2)
Quarter: 2013Q3

REPORT INFORMATION
  Report Type: Spontaneous
  Country: DE (occurrence: DE)
  Receive Date: 20130902
  Receipt Date: 20130925
  Transmission Date: 20140515
  Serious: Yes (Other)
  Sender: FDA-Public Use
  Company Number: DE-AMGEN-DEUSP2013061296

PATIENT
  Age: 49 Year
  Sex: Female

DRUGS (3)
  1. ENBREL [Suspect]
     Indication: PSORIASIS
     Dosage: 50 MG, WEEKLY
     Route: 058
     Dates: start: 200904
  2. CEFTRIAXONE SODIUM [Suspect]
     Indication: MENINGITIS
     Dosage: UNK
     Route: 042
     Dates: start: 20130802, end: 20130818
  3. CEFTRIAXONE SODIUM [Suspect]
     Dosage: UNK
     Route: 048
     Dates: start: 20130820, end: 20130821

REACTIONS (2)
  - Meningitis [Recovered/Resolved]
  - Urticaria [Recovered/Resolved]
